FAERS Safety Report 17354519 (Version 3)
Quarter: 2021Q2

REPORT INFORMATION
  Report Type: Spontaneous
  Country: US (occurrence: US)
  Receive Date: 20200131
  Receipt Date: 20210615
  Transmission Date: 20210716
  Serious: Yes (Other)
  Sender: FDA-Public Use
  Company Number: US-BEH-2020112158

PATIENT
  Sex: Female

DRUGS (2)
  1. TYLENOL [Concomitant]
     Active Substance: ACETAMINOPHEN
  2. HIZENTRA [Suspect]
     Active Substance: HUMAN IMMUNOGLOBULIN G
     Indication: IMMUNODEFICIENCY COMMON VARIABLE
     Dosage: 10 GRAM, QW
     Route: 058
     Dates: start: 20190801

REACTIONS (10)
  - Oropharyngeal pain [Unknown]
  - Nasal congestion [Unknown]
  - Nausea [Unknown]
  - Dizziness [Unknown]
  - Diarrhoea haemorrhagic [Unknown]
  - Pruritus [Unknown]
  - Contusion [Unknown]
  - Rash [Unknown]
  - Pyrexia [Unknown]
  - Injection site swelling [Unknown]
